FAERS Safety Report 7298879-1 (Version None)
Quarter: 2011Q1

REPORT INFORMATION
  Report Type: 
  Country: None (occurrence: None)
  Receive Date: 20110209
  Receipt Date: 20110125
  Transmission Date: 20110831
  Serious: Yes (Hospitalization)
  Sender: FDA-Public Use
  Company Number: 010995

PATIENT
  Sex: Female
  Weight: 57.1 kg

DRUGS (16)
  1. AMLODIPINE BESILATE [Concomitant]
  2. TAUROURSODESOXYCHOLIC ACID [Concomitant]
  3. PREDNISOLONE [Suspect]
     Indication: RHEUMATOID ARTHRITIS
     Dosage: (2 MG ORAL) ; (2 MG ORAL)
     Route: 048
     Dates: start: 20100527
  4. PREDNISOLONE [Suspect]
     Indication: RHEUMATOID ARTHRITIS
     Dosage: (2 MG ORAL) ; (2 MG ORAL)
     Route: 048
     Dates: start: 20090331, end: 20100416
  5. ROXATIDINE ACETATE HYDROCHLORDIE [Concomitant]
  6. DICLOFENAC SODIUM [Concomitant]
  7. CERTOLIZUMAB PEGOL (CERTOLIZUMAB PEGOL) [Suspect]
     Indication: RHEUMATOID ARTHRITIS
     Dosage: (200 MG 1X/2 WEEKS SUBCUTANEOUS) ; (200 MG 1X/2 WEEKS SUBCUTANEOUS) ; (SUBCUTANEOUS)
     Route: 058
     Dates: start: 20110120
  8. CERTOLIZUMAB PEGOL (CERTOLIZUMAB PEGOL) [Suspect]
     Indication: RHEUMATOID ARTHRITIS
     Dosage: (200 MG 1X/2 WEEKS SUBCUTANEOUS) ; (200 MG 1X/2 WEEKS SUBCUTANEOUS) ; (SUBCUTANEOUS)
     Route: 058
     Dates: start: 20090820, end: 20100415
  9. CERTOLIZUMAB PEGOL (CERTOLIZUMAB PEGOL) [Suspect]
     Indication: RHEUMATOID ARTHRITIS
     Dosage: (200 MG 1X/2 WEEKS SUBCUTANEOUS) ; (200 MG 1X/2 WEEKS SUBCUTANEOUS) ; (SUBCUTANEOUS)
     Route: 058
     Dates: start: 20100526, end: 20101125
  10. VOLTAREN [Suspect]
     Indication: RHEUMATOID ARTHRITIS
     Dosage: (ADEQUATE DOSE, AS NEEDED TRANSDERMAL) ; (ADEQUATE DOSE TRANSDERMAL)
     Route: 062
     Dates: start: 20100526
  11. VOLTAREN [Suspect]
     Indication: RHEUMATOID ARTHRITIS
     Dosage: (ADEQUATE DOSE, AS NEEDED TRANSDERMAL) ; (ADEQUATE DOSE TRANSDERMAL)
     Route: 062
     Dates: start: 20090528
  12. ISONIAZID [Concomitant]
  13. TEPRENONE [Concomitant]
  14. RABEPRAZOLE SODIUM [Concomitant]
  15. PYRIDOXAL PHOSPHATE [Concomitant]
  16. TRIAZOLAM [Concomitant]

REACTIONS (11)
  - SUBARACHNOID HAEMORRHAGE [None]
  - BLOOD PRESSURE DIASTOLIC DECREASED [None]
  - HYDROCEPHALUS [None]
  - BLOOD PRESSURE SYSTOLIC INCREASED [None]
  - CEREBROVASCULAR SPASM [None]
  - ACTIVATED PARTIAL THROMBOPLASTIN TIME PROLONGED [None]
  - RHEUMATOID ARTHRITIS [None]
  - PROTHROMBIN TIME SHORTENED [None]
  - ARTHROPATHY [None]
  - ANEURYSM RUPTURED [None]
  - CONDITION AGGRAVATED [None]
